FAERS Safety Report 7934868-9 (Version None)
Quarter: 2011Q4

REPORT INFORMATION
  Report Type: 
  Country: None (occurrence: None)
  Receive Date: 20111118
  Receipt Date: 20111108
  Transmission Date: 20120403
  Serious: Yes (Hospitalization)
  Sender: FDA-Public Use
  Company Number: TCI2011A05173

PATIENT
  Age: 66 Year
  Sex: Female

DRUGS (2)
  1. ACTOS [Suspect]
     Indication: DIABETES MELLITUS
     Dosage: 15 MG (15 MG, 1 IN 1 D)
     Route: 048
     Dates: start: 20101217, end: 20110129
  2. NESSINA TABLETS [Concomitant]

REACTIONS (4)
  - OEDEMA PERIPHERAL [None]
  - PLEURAL EFFUSION [None]
  - WEIGHT INCREASED [None]
  - DYSPNOEA [None]
